FAERS Safety Report 14286097 (Version 1)
Quarter: 2017Q4

REPORT INFORMATION
  Report Type: Spontaneous
  Country: IT (occurrence: IT)
  Receive Date: 20171214
  Receipt Date: 20171214
  Transmission Date: 20180321
  Serious: Yes (Other)
  Sender: FDA-Public Use
  Company Number: IT-ASTRAZENECA-2017SE65084

PATIENT
  Age: 41 Year
  Sex: Female

DRUGS (4)
  1. OLAPARIB. [Suspect]
     Active Substance: OLAPARIB
     Route: 048
     Dates: start: 20150810, end: 20150816
  2. OLAPARIB. [Suspect]
     Active Substance: OLAPARIB
     Dosage: 50 MG DAILY, UP TO 800 MG DAILY UNLESS NAUSEA APPEARED AGAIN
     Route: 048
     Dates: start: 20150905
  3. OLAPARIB. [Suspect]
     Active Substance: OLAPARIB
     Route: 048
     Dates: start: 201512
  4. OLAPARIB. [Suspect]
     Active Substance: OLAPARIB
     Dosage: REDUCED DOSE
     Route: 048
     Dates: start: 20150824, end: 20150827

REACTIONS (4)
  - Neurotoxicity [Unknown]
  - Vomiting [Unknown]
  - Diarrhoea [Unknown]
  - Asthenia [Unknown]

NARRATIVE: CASE EVENT DATE: 20150810
